FAERS Safety Report 15566205 (Version 4)
Quarter: 2019Q1

REPORT INFORMATION
  Report Type: Spontaneous
  Country: DE (occurrence: DE)
  Receive Date: 20181030
  Receipt Date: 20190328
  Transmission Date: 20190417
  Serious: Yes (Hospitalization, Other)
  Sender: FDA-Public Use
  Company Number: DE-BRACCO-2018DE05435

PATIENT
  Age: 76 Year
  Sex: Male

DRUGS (42)
  1. AMLODIPIN                          /00972401/ [Concomitant]
     Active Substance: AMLODIPINE BESYLATE
     Indication: HYPERTENSION
     Dosage: 5 MG, BID
     Route: 048
  2. ARCOXIA [Concomitant]
     Active Substance: ETORICOXIB
     Dosage: 90 MG, QD, MORNING
  3. DIAZEPAM. [Concomitant]
     Active Substance: DIAZEPAM
     Dosage: 10 MG, AS NECESSARY
  4. PREDNISOLON                        /00016201/ [Concomitant]
     Active Substance: PREDNISOLONE
     Dosage: UNK, QD, STARTING WITH 50MG QD, REDUCED BY 10MG PER WEEK
     Dates: start: 201809
  5. DOTAREM [Suspect]
     Active Substance: GADOTERATE MEGLUMINE
     Indication: MAGNETIC RESONANCE CHOLANGIOPANCREATOGRAPHY
     Dosage: 1 DF, SINGLE
     Route: 042
     Dates: start: 20170410, end: 20170410
  6. NOVAMINSULFON [Concomitant]
     Active Substance: METAMIZOLE
     Dosage: 500 MG, DAILY/AS NECESSARY
     Route: 048
  7. HYDROMORPHONE [Concomitant]
     Active Substance: HYDROMORPHONE
     Dosage: 1.3 MG, AS NECESSARY, NON-RETARD PREPARATION
     Dates: start: 201705
  8. RAMIPRIL. [Concomitant]
     Active Substance: RAMIPRIL
     Dosage: 5 MG, QD, MORNING
     Dates: start: 201705
  9. SAB SIMPLEX                        /00159501/ [Concomitant]
     Dosage: UNK, AS NECESSARY
  10. SALBUTAMOL [Concomitant]
     Active Substance: ALBUTEROL
     Dosage: UNK, AS NECESSARY
     Route: 055
     Dates: start: 201809
  11. VIANI [Concomitant]
     Active Substance: FLUTICASONE PROPIONATE\SALMETEROL XINAFOATE
     Dosage: UNK, BID, 2X MORNING, 2X EVENING
     Dates: start: 201809
  12. PROHANCE [Suspect]
     Active Substance: GADOTERIDOL
     Indication: NUCLEAR MAGNETIC RESONANCE IMAGING
     Dosage: 1 DF, SINGLE
     Route: 042
     Dates: start: 20180503, end: 20180503
  13. DOTAREM [Suspect]
     Active Substance: GADOTERATE MEGLUMINE
     Indication: NUCLEAR MAGNETIC RESONANCE IMAGING SPINAL
     Dosage: 1 DF, SINGLE
     Dates: start: 20180503, end: 20180503
  14. HYDROMORPHONE [Concomitant]
     Active Substance: HYDROMORPHONE
     Dosage: 2 MG, BID, RETARD PREPARATION
     Dates: start: 201705
  15. CANDESARTAN. [Concomitant]
     Active Substance: CANDESARTAN
     Dosage: 16 MG, QD, MORNING
     Route: 048
     Dates: start: 201809
  16. INSULIN ASPART [Concomitant]
     Active Substance: INSULIN ASPART
     Indication: DIABETES MELLITUS
     Dosage: 3X2 IU
     Route: 058
  17. VITAMIN D3 [Concomitant]
     Active Substance: CHOLECALCIFEROL
  18. FUROSEMIDE. [Concomitant]
     Active Substance: FUROSEMIDE
     Indication: POLYURIA
     Dosage: UNK
     Dates: start: 201704
  19. ASS PROTECTID [Concomitant]
     Dosage: 100 MG, UNK, IN THE MORNING
  20. PERINDOPRIL + AMLODIPINA SANDOZ [Concomitant]
     Dosage: 2 DF, QD, 3.5/2.5MG, MORNING
  21. FERROSANOL [Concomitant]
     Active Substance: FERROUS GLUCONATE
     Dosage: 100 MG, BID, MORNING AND EVENING
  22. KREON                              /00014701/ [Concomitant]
     Active Substance: PANCRELIPASE
     Indication: PANCREATIC FAILURE
     Dosage: 25000 IU, TID
     Route: 048
  23. BUSCOPAN [Concomitant]
     Active Substance: BUTYLSCOPOLAMINE BROMIDE
     Dosage: UNK, DAILY/AS NECESSARY
     Route: 042
  24. TORASEMID [Concomitant]
     Active Substance: TORSEMIDE
     Dosage: 5 MG, QD, MORNING
     Dates: start: 201809
  25. RASILEZ [Concomitant]
     Active Substance: ALISKIREN
     Indication: HYPERTENSION
     Dosage: 150 MG, QD, IN THE MORNING
     Route: 048
     Dates: end: 201705
  26. CIPROHEXAL                         /00697201/ [Concomitant]
     Dosage: 500 MG, BID, MORNING AND EVENING
     Route: 048
     Dates: end: 20170215
  27. MOVICOL [Concomitant]
     Active Substance: POLYETHYLENE GLYCOL 3350\POTASSIUM CHLORIDE\SODIUM BICARBONATE\SODIUM CHLORIDE
     Dosage: UNK UNK, QD
  28. AMLODIPINE [Concomitant]
     Active Substance: AMLODIPINE BESYLATE
     Dosage: 5 MG, QD, MORNING
  29. PANTOPRAZOL [Concomitant]
     Active Substance: PANTOPRAZOLE SODIUM
     Dosage: 40 MG, BID, MORNING AND EVENING
  30. PROHANCE [Suspect]
     Active Substance: GADOTERIDOL
     Indication: NUCLEAR MAGNETIC RESONANCE IMAGING
     Dosage: 1 DF, SINGLE
     Route: 042
     Dates: start: 20180109, end: 20180109
  31. PROTAPHANE [Concomitant]
     Active Substance: INSULIN HUMAN
     Indication: DIABETES MELLITUS
     Dosage: 8 IU, UNK
     Route: 058
  32. CIPROFLOXACIN. [Concomitant]
     Active Substance: CIPROFLOXACIN
     Dosage: 500 UNK, BID, MORNING AND EVENING
     Dates: start: 201707
  33. CLONT                              /00012501/ [Concomitant]
     Active Substance: METRONIDAZOLE
     Dosage: 400 UNK, BID, MORNING AND EVENING
     Dates: start: 201707
  34. MIRTAZAPIN [Concomitant]
     Active Substance: MIRTAZAPINE
     Dosage: 15 MG, QD, 2X 15 AT NIGHT
  35. BALDRIAN-PHYTON [Concomitant]
     Dosage: 5 MG, QD, AT NIGHT
  36. RASILEZ [Concomitant]
     Active Substance: ALISKIREN
     Dosage: 150 MG, BID, 2X MORNING, 1X EVENING
     Route: 048
  37. GADOTERIC ACID [Suspect]
     Active Substance: GADOTERATE MEGLUMINE
     Indication: NUCLEAR MAGNETIC RESONANCE IMAGING
     Dosage: 1 DF
     Dates: start: 20170703, end: 20170703
  38. ASS TAH [Concomitant]
     Dosage: 100 MG, QD, MIDDAY
     Route: 048
  39. TROMCARDIN COMPLEX [Concomitant]
     Dosage: UNK, QD, MORNING
     Route: 048
  40. METRONIDAZOL ARISTO [Concomitant]
     Active Substance: METRONIDAZOLE
     Dosage: 400 MG, BID, MORNING AND EVENING
     Route: 048
     Dates: end: 20170315
  41. VERGENTAN [Concomitant]
     Active Substance: ALIZAPRIDE HYDROCHLORIDE
     Dosage: UNK, AS NECESSARY, 3X DAILY
  42. DEKRISTOL [Concomitant]
     Active Substance: CHOLECALCIFEROL
     Dosage: 1000 IU, QD, MORNING

REACTIONS (9)
  - Adjustment disorder with depressed mood [Unknown]
  - General physical health deterioration [Unknown]
  - Gadolinium deposition disease [Not Recovered/Not Resolved]
  - Myalgia [Not Recovered/Not Resolved]
  - Pain [Not Recovered/Not Resolved]
  - Dyspnoea [Not Recovered/Not Resolved]
  - Musculoskeletal stiffness [Not Recovered/Not Resolved]
  - Arthralgia [Unknown]
  - Arthralgia [Recovered/Resolved]

NARRATIVE: CASE EVENT DATE: 2017
